FAERS Safety Report 19402750 (Version 3)
Quarter: 2022Q1

REPORT INFORMATION
  Report Type: Spontaneous
  Country: IN (occurrence: IN)
  Receive Date: 20210610
  Receipt Date: 20220308
  Transmission Date: 20220424
  Serious: Yes (Other)
  Sender: FDA-Public Use
  Company Number: IN-PFIZER INC-2021557737

PATIENT
  Age: 59 Year
  Sex: Female

DRUGS (8)
  1. PALBOCICLIB [Suspect]
     Active Substance: PALBOCICLIB
     Indication: Breast cancer metastatic
     Dosage: 125 MG, 1X/DAY
     Route: 048
     Dates: start: 20210417
  2. PALBOCICLIB [Suspect]
     Active Substance: PALBOCICLIB
     Dosage: 100 MG, CYCLIC (1X/DAY FOR 21 DAYS)
     Route: 048
  3. LETROZOLE [Concomitant]
     Active Substance: LETROZOLE
     Dosage: 2.5 MG, DAILY
     Route: 048
  4. OSTOCAL [CALCIUM CARBONATE] [Concomitant]
     Dosage: 1 MG, 1X/DAY
  5. ZOLDONAT [Concomitant]
     Dosage: 4 MG
     Route: 042
  6. UPRISE D3 [Concomitant]
     Dosage: 60000 IU, WEEKLY (EVERY MONDAY FOR 6 WEEKS)
  7. ULTRACET [Concomitant]
     Active Substance: ACETAMINOPHEN\TRAMADOL HYDROCHLORIDE
     Indication: Pain
     Dosage: 1 DF, AS NEEDED
  8. ACETAMINOPHEN [Concomitant]
     Active Substance: ACETAMINOPHEN
     Indication: Pyrexia
     Dosage: 1 DF, AS NEEDED

REACTIONS (2)
  - Loss of consciousness [Unknown]
  - Asthenia [Unknown]
